FAERS Safety Report 5401461-1 (Version None)
Quarter: 2007Q3

REPORT INFORMATION
  Report Type: 
  Country: None (occurrence: None)
  Receive Date: 20070731
  Receipt Date: 20070720
  Transmission Date: 20080115
  Serious: Yes (Hospitalization)
  Sender: FDA-Public Use
  Company Number: US-GENENTECH-243505

PATIENT
  Sex: Female

DRUGS (7)
  1. BEVACIZUMAB [Suspect]
     Indication: GLIOBLASTOMA MULTIFORME
     Dosage: 10 MG/KG, DAYS 1+15
     Route: 042
     Dates: start: 20070502
  2. ETOPOSIDE [Suspect]
     Indication: GLIOBLASTOMA MULTIFORME
     Dosage: 100 MG, UNK
     Route: 042
     Dates: start: 20070502
  3. KEPPRA [Concomitant]
     Indication: DRUG USE FOR UNKNOWN INDICATION
     Dosage: 3500 MG, BID
     Route: 048
  4. COLACE [Concomitant]
     Indication: DRUG USE FOR UNKNOWN INDICATION
     Dosage: UNK, PRN
     Route: 048
  5. DECADRON [Concomitant]
     Indication: DRUG USE FOR UNKNOWN INDICATION
     Dosage: 10 MG, QD
  6. MULTI-VITAMIN [Concomitant]
     Indication: DRUG USE FOR UNKNOWN INDICATION
     Dosage: UNK, QDX2
     Route: 048
  7. FIBER [Concomitant]
     Indication: DRUG USE FOR UNKNOWN INDICATION
     Dosage: UNK, QD
     Route: 048

REACTIONS (3)
  - DEEP VEIN THROMBOSIS [None]
  - FALL [None]
  - SKIN ULCER [None]
